FAERS Safety Report 7556797-5 (Version None)
Quarter: 2011Q2

REPORT INFORMATION
  Report Type: 
  Country: None (occurrence: None)
  Receive Date: 20110620
  Receipt Date: 20110609
  Transmission Date: 20111010
  Serious: Yes (Other)
  Sender: FDA-Public Use
  Company Number: BR-US-EMD SERONO, INC.-7064876

PATIENT
  Sex: Female

DRUGS (4)
  1. REBIF [Suspect]
     Indication: PRIMARY PROGRESSIVE MULTIPLE SCLEROSIS
     Dates: start: 20100616, end: 20110602
  2. RAMIPRIL [Concomitant]
  3. MIRTAZAPINE [Concomitant]
  4. VYTORIN [Concomitant]

REACTIONS (4)
  - SERUM FERRITIN INCREASED [None]
  - ALANINE AMINOTRANSFERASE INCREASED [None]
  - OFF LABEL USE [None]
  - ASPARTATE AMINOTRANSFERASE INCREASED [None]
